FAERS Safety Report 4641885-3 (Version None)
Quarter: 2005Q2

REPORT INFORMATION
  Report Type: 
  Country: None (occurrence: None)
  Receive Date: 20050421
  Receipt Date: 20050415
  Transmission Date: 20051028
  Serious: Yes (Other)
  Sender: FDA-Public Use
  Company Number: US-MERCK-0504USA03265

PATIENT
  Sex: Female

DRUGS (2)
  1. VIOXX [Suspect]
     Route: 048
     Dates: start: 19990901, end: 19990901
  2. VIOXX [Suspect]
     Route: 048
     Dates: start: 19990901, end: 20040830

REACTIONS (1)
  - MYOCARDIAL INFARCTION [None]
